FAERS Safety Report 9444284 (Version 2)
Quarter: 2013Q3

REPORT INFORMATION
  Report Type: Report from Study
  Country: US (occurrence: US)
  Receive Date: 20130807
  Receipt Date: 20130821
  Transmission Date: 20140515
  Serious: Yes (Death)
  Sender: FDA-Public Use
  Company Number: US-ROCHE-1258403

PATIENT
  Age: 28 Year
  Sex: Male
  Weight: 68.55 kg

DRUGS (9)
  1. RITUXAN [Suspect]
     Indication: LYMPHOMA
     Route: 042
     Dates: start: 20120808, end: 20120830
  2. RITUXAN [Suspect]
     Dosage: IN /NOV/2012, THE PATIET RECEIVED LAST DOSE OF RITUXIMAB.
     Route: 042
     Dates: end: 201211
  3. DOXORUBICIN [Concomitant]
     Dosage: IN /NOV/2012, THE PATIET RECEIVED LAST DOSE
     Route: 042
  4. VINCRISTINE [Concomitant]
     Dosage: IN /NOV/2012, THE PATIET RECEIVED LAST DOSE
     Route: 042
  5. CYCLOPHOSPHAMIDE [Concomitant]
     Dosage: IN /NOV/2012, THE PATIET RECEIVED LAST DOSE
     Route: 042
  6. PEPCID [Concomitant]
     Route: 042
  7. DEXAMETHASONE [Concomitant]
     Route: 042
  8. PALONOSETRON [Concomitant]
     Dosage: IN /NOV/2012, THE PATIET RECEIVED LAST DOSE
     Route: 042
  9. ACETAMINOPHEN [Concomitant]
     Route: 048

REACTIONS (1)
  - Haemorrhage intracranial [Fatal]
